FAERS Safety Report 9164820 (Version 2)
Quarter: 2013Q1

REPORT INFORMATION
  Report Type: Spontaneous
  Country: ES (occurrence: ES)
  Receive Date: 20130315
  Receipt Date: 20130322
  Transmission Date: 20140127
  Serious: Yes (Other)
  Sender: FDA-Public Use
  Company Number: ES-JNJFOC-20130301423

PATIENT
  Age: 46 Year
  Sex: Male
  Weight: 70 kg

DRUGS (2)
  1. STELARA [Suspect]
     Indication: PSORIASIS
     Route: 058
     Dates: start: 20101102, end: 20121205
  2. ACITRETIN [Concomitant]
     Dosage: DIA
     Route: 065
     Dates: start: 20121205

REACTIONS (1)
  - Bladder cancer [Not Recovered/Not Resolved]
